FAERS Safety Report 6915974-4 (Version None)
Quarter: 2010Q3

REPORT INFORMATION
  Report Type: 
  Country: None (occurrence: None)
  Receive Date: 20100809
  Receipt Date: 20100809
  Transmission Date: 20110219
  Serious: Yes (Hospitalization)
  Sender: FDA-Public Use
  Company Number: None

PATIENT
  Age: 65 Year
  Sex: Male
  Weight: 49.8957 kg

DRUGS (18)
  1. LISINOPRIL [Suspect]
     Indication: HYPERTENSION
     Dosage: 5 MG DAILY PO ; 2 YEARS PRIOR TO ADMIT
     Route: 048
  2. CYCLOBENZAPRINE [Concomitant]
  3. ASPIRIN [Concomitant]
  4. ESOMEPRAZOLE MAGNESIUM [Concomitant]
  5. FINASTERIDE [Concomitant]
  6. FOLIC ACID [Concomitant]
  7. METOPROLOL [Concomitant]
  8. ROSUVASTATIN [Concomitant]
  9. ACETAMINOPHEN/DIPHENHYDRAMINE [Concomitant]
  10. TIOTROPIUM INHALER [Concomitant]
  11. FLUTICASONE/SALMETEROL [Concomitant]
  12. DICLOFENAC SODIUM [Concomitant]
  13. GEMFIBROZIL [Concomitant]
  14. TRAMADOL [Concomitant]
  15. OXYCODONE HCL AND ACETAMINOPHEN [Concomitant]
  16. HYDROCORTISONE [Concomitant]
  17. ZOLPIDEM [Concomitant]
  18. CEVIMELINE [Concomitant]

REACTIONS (2)
  - DYSPNOEA [None]
  - SWOLLEN TONGUE [None]
